FAERS Safety Report 8288051-0 (Version None)
Quarter: 2012Q2

REPORT INFORMATION
  Report Type: 
  Country: None (occurrence: None)
  Receive Date: 20120411
  Receipt Date: 20120411
  Transmission Date: 20120825
  Serious: Yes (Hospitalization)
  Sender: FDA-Public Use
  Company Number: None

PATIENT
  Sex: Female
  Weight: 19.1 kg

DRUGS (11)
  1. RANITIDINE [Concomitant]
  2. METHOTREXATE [Suspect]
     Dosage: 24 MG
  3. PEG-L-ASPARAGINASE (PEGASPARGASE, ONCOSPAR) [Suspect]
     Dosage: 1750 IU
  4. MIRILAX [Concomitant]
  5. TRIMETHOPRIM + SULFAMETHOXAZOLE [Concomitant]
  6. LACTULOSE [Concomitant]
  7. CYTARABINE [Suspect]
     Dosage: 70 MG
  8. VINCRISTINE SULFATE [Suspect]
     Dosage: 4.2 MG
  9. DEXAMETHASONE [Suspect]
     Dosage: 108 MG
  10. ACETAMINAPHEN-CODEINE [Concomitant]
  11. GABAPENTIN [Concomitant]

REACTIONS (4)
  - ASPARTATE AMINOTRANSFERASE INCREASED [None]
  - NEUTROPENIA [None]
  - ALANINE AMINOTRANSFERASE INCREASED [None]
  - PYREXIA [None]
